FAERS Safety Report 4456837-6 (Version None)
Quarter: 2004Q3

REPORT INFORMATION
  Report Type: 
  Country: None (occurrence: None)
  Receive Date: 20040921
  Receipt Date: 20040904
  Transmission Date: 20050211
  Serious: Yes (Hospitalization)
  Sender: FDA-Public Use
  Company Number: DSA_24930_2004

PATIENT
  Age: 49 Year
  Sex: Female

DRUGS (6)
  1. DICLOFENAC ORAL [Suspect]
     Indication: BACK PAIN
     Dosage: 50 MG BID PO
     Route: 048
  2. DICLOFENAC INJECTION [Suspect]
     Indication: BACK PAIN
     Dosage: 75 MG ONCE SC
     Route: 058
     Dates: start: 20020801
  3. DICLOFENAC INJECTION [Suspect]
     Indication: BACK PAIN
     Dosage: 75 MG ONCE SC
     Route: 058
     Dates: start: 20020101
  4. DICLOFENAC INJECTION [Suspect]
     Indication: BACK PAIN
     Dosage: 75 MG ONCE SC
     Route: 058
     Dates: start: 20020101
  5. DICLOFENAC INJECTION [Suspect]
     Indication: BACK PAIN
     Dosage: 75 MG ONCE SC
     Route: 058
     Dates: start: 20021021
  6. KETOLORAC (KETO) [Suspect]
     Dosage: 30 MG BID
     Dates: start: 20021023, end: 20021023

REACTIONS (12)
  - ARTERIAL THROMBOSIS LIMB [None]
  - BACK PAIN [None]
  - CONDITION AGGRAVATED [None]
  - EOSINOPHILIA [None]
  - FEMORAL ARTERY OCCLUSION [None]
  - GLOMERULONEPHRITIS MINIMAL LESION [None]
  - HAEMODIALYSIS [None]
  - PITTING OEDEMA [None]
  - PROTEIN TOTAL INCREASED [None]
  - PYREXIA [None]
  - RASH [None]
  - RENAL FAILURE ACUTE [None]
